FAERS Safety Report 8643151 (Version 2)
Quarter: 2012Q4

REPORT INFORMATION
  Report Type: 
  Country: DE (occurrence: FR)
  Receive Date: 20120629
  Receipt Date: 20121213
  Transmission Date: 20130627
  Serious: Yes (Hospitalization)
  Sender: FDA-Public Use
  Company Number: FR-BRISTOL-MYERS SQUIBB COMPANY-16709958

PATIENT
  Age: 42 Year
  Sex: Female

DRUGS (4)
  1. ERBITUX SOLN FOR INF [Suspect]
     Indication: COLORECTAL CANCER
     Route: 042
     Dates: start: 20120322, end: 20120504
  2. OXALIPLATIN [Suspect]
     Indication: COLORECTAL CANCER
     Route: 042
     Dates: start: 20120322, end: 20120504
  3. FLUOROURACIL [Suspect]
     Indication: COLORECTAL CANCER
     Dosage: day 1 bolus, day  1 and 2, 2 days with infusor
     Route: 042
     Dates: start: 20120322, end: 20120504
  4. CALCIUM LEVOFOLINATE [Suspect]
     Indication: COLORECTAL CANCER
     Dosage: 175mg  powder for soln for inj
     Route: 042
     Dates: start: 20120322, end: 20120504

REACTIONS (1)
  - Haematuria [Recovered/Resolved]
